FAERS Safety Report 13632075 (Version 2)
Quarter: 2017Q3

REPORT INFORMATION
  Report Type: Spontaneous
  Country: CN (occurrence: CN)
  Receive Date: 20170608
  Receipt Date: 20170712
  Transmission Date: 20171127
  Serious: Yes (Other)
  Sender: FDA-Public Use
  Company Number: CN-IMPAX LABORATORIES, INC-2017-IPXL-01099

PATIENT
  Age: 32 Year
  Sex: Female
  Weight: 55 kg

DRUGS (1)
  1. ALBENZA [Suspect]
     Active Substance: ALBENDAZOLE
     Indication: HELMINTHIC INFECTION
     Dosage: 0.4 G (2 TABLET OF 0.2 G), 1 /DAY
     Route: 048
     Dates: start: 20170326, end: 20170326

REACTIONS (7)
  - Nasopharyngitis [Unknown]
  - Abortion induced [Unknown]
  - Medication error [Unknown]
  - Body temperature decreased [Unknown]
  - Discomfort [Recovered/Resolved]
  - Contraindicated product administered [Unknown]
  - Exposure during pregnancy [Unknown]

NARRATIVE: CASE EVENT DATE: 2017
